FAERS Safety Report 6169181-6 (Version None)
Quarter: 2009Q2

REPORT INFORMATION
  Report Type: 
  Country: None (occurrence: None)
  Receive Date: 20090424
  Receipt Date: 20090214
  Transmission Date: 20091009
  Serious: No
  Sender: FDA-Public Use
  Company Number: ALL1-2009-00406

PATIENT
  Age: 35 Year
  Sex: Female
  Weight: 63.5 kg

DRUGS (2)
  1. VYVANSE [Suspect]
     Indication: ATTENTION DEFICIT/HYPERACTIVITY DISORDER
     Dosage: 30 MG, 1X/DAY:QD (ONLY ON SCHOOL DAYS), ORAL
     Route: 048
     Dates: start: 20080901
  2. BUSPAR [Concomitant]

REACTIONS (7)
  - DECREASED INTEREST [None]
  - DRUG INEFFECTIVE [None]
  - FATIGUE [None]
  - HEADACHE [None]
  - IRRITABILITY [None]
  - SLUGGISHNESS [None]
  - WITHDRAWAL SYNDROME [None]
